FAERS Safety Report 21693016 (Version 1)
Quarter: 2022Q4

REPORT INFORMATION
  Report Type: Spontaneous
  Country: RU (occurrence: RU)
  Receive Date: 20221207
  Receipt Date: 20221207
  Transmission Date: 20230113
  Serious: Yes (Other)
  Sender: FDA-Public Use
  Company Number: RU-ASPEN-GLO2022RU007183

PATIENT

DRUGS (4)
  1. BUSULFAN [Suspect]
     Active Substance: BUSULFAN
     Indication: Bone marrow conditioning regimen
     Dosage: UNK
     Route: 065
     Dates: start: 1997, end: 1997
  2. CYCLOPHOSPHAMIDE [Suspect]
     Active Substance: CYCLOPHOSPHAMIDE
     Indication: Bone marrow conditioning regimen
     Dosage: UNK
     Route: 065
     Dates: start: 1997, end: 1997
  3. HYDROXYUREA [Concomitant]
     Active Substance: HYDROXYUREA
     Indication: Chronic myeloid leukaemia
     Dosage: UNK
     Route: 065
  4. INTERFERON ALFA-2B [Concomitant]
     Active Substance: INTERFERON ALFA-2B
     Indication: Chronic myeloid leukaemia
     Dosage: UNK
     Route: 065

REACTIONS (4)
  - Pneumonia [Recovered/Resolved]
  - Mucosal inflammation [Recovered/Resolved]
  - Herpes virus infection [Recovered/Resolved]
  - Short stature [Not Recovered/Not Resolved]

NARRATIVE: CASE EVENT DATE: 19970101
